FAERS Safety Report 7938394-2 (Version None)
Quarter: 2011Q4

REPORT INFORMATION
  Report Type: 
  Country: None (occurrence: None)
  Receive Date: 20111123
  Receipt Date: 20111118
  Transmission Date: 20120403
  Serious: No
  Sender: FDA-Public Use
  Company Number: US-PFIZER INC-2011283240

PATIENT
  Sex: Male
  Weight: 86 kg

DRUGS (6)
  1. CHANTIX [Suspect]
     Indication: SMOKING CESSATION THERAPY
     Dosage: 0.5 MG, DAILY
     Route: 048
     Dates: start: 20070101
  2. DILTIAZEM [Concomitant]
     Indication: OESOPHAGEAL ACHALASIA
     Dosage: 180 MG, 2X/DAY
  3. CHANTIX [Suspect]
     Dosage: 1 MG, UNK
     Route: 048
     Dates: start: 20111104
  4. DILTIAZEM [Concomitant]
     Indication: BLOOD PRESSURE
  5. CHANTIX [Suspect]
     Dosage: 0.5 MG, DAILY
     Route: 048
     Dates: start: 20111028, end: 20111103
  6. ACETYLSALICYLIC ACID [Concomitant]
     Dosage: 81 MG, DAILY

REACTIONS (4)
  - DIZZINESS [None]
  - INFREQUENT BOWEL MOVEMENTS [None]
  - GASTROINTESTINAL HYPOMOTILITY [None]
  - FLATULENCE [None]
